FAERS Safety Report 8416198-4 (Version None)
Quarter: 2012Q2

REPORT INFORMATION
  Report Type: 
  Country: None (occurrence: None)
  Receive Date: 20120606
  Receipt Date: 20120227
  Transmission Date: 20120825
  Serious: Yes (Other)
  Sender: FDA-Public Use
  Company Number: US-ROCHE-801698

PATIENT
  Age: 42 Year
  Sex: Female
  Weight: 89.8 kg

DRUGS (10)
  1. POSACONAZOLE [Suspect]
     Route: 048
  2. VESANOID [Suspect]
     Indication: ACUTE MYELOID LEUKAEMIA
     Route: 065
     Dates: start: 20110511, end: 20110513
  3. ETOPOSIDE [Suspect]
     Indication: ACUTE MYELOID LEUKAEMIA
     Route: 065
     Dates: start: 20110506, end: 20110508
  4. IDARUBICIN HYDROCHLORIDE [Suspect]
     Indication: ACUTE MYELOID LEUKAEMIA
     Route: 065
     Dates: start: 20110506, end: 20110510
  5. POSACONAZOLE [Suspect]
     Indication: ANTIBIOTIC THERAPY
     Route: 048
     Dates: start: 20110504, end: 20110524
  6. VESANOID [Suspect]
     Route: 065
     Dates: start: 20110514, end: 20110526
  7. GEMTUZUMAB ZOGAMICIN [Suspect]
     Indication: ACUTE MYELOID LEUKAEMIA
  8. LEVOFLOXACIN [Suspect]
     Route: 048
  9. CYTARABINE [Suspect]
     Indication: ACUTE MYELOID LEUKAEMIA
     Route: 065
     Dates: start: 20110506, end: 20110512
  10. LEVOFLOXACIN [Suspect]
     Indication: ANTIBIOTIC THERAPY
     Route: 048
     Dates: start: 20110504, end: 20110513

REACTIONS (4)
  - HYPERBILIRUBINAEMIA [None]
  - ALANINE AMINOTRANSFERASE INCREASED [None]
  - ASPARTATE AMINOTRANSFERASE INCREASED [None]
  - BLOOD ALKALINE PHOSPHATASE INCREASED [None]
